FAERS Safety Report 21679524 (Version 2)
Quarter: 2023Q1

REPORT INFORMATION
  Report Type: Report from Study
  Country: US (occurrence: US)
  Receive Date: 20221205
  Receipt Date: 20230202
  Transmission Date: 20230417
  Serious: Yes (Other)
  Sender: FDA-Public Use
  Company Number: US-ABBVIE-4222546

PATIENT
  Sex: Male

DRUGS (2)
  1. HUMIRA [Suspect]
     Active Substance: ADALIMUMAB
     Indication: Ankylosing spondylitis
     Route: 058
     Dates: start: 20200408
  2. HUMIRA [Suspect]
     Active Substance: ADALIMUMAB
     Route: 058

REACTIONS (9)
  - Knee arthroplasty [Unknown]
  - Ligament sprain [Not Recovered/Not Resolved]
  - Ankylosing spondylitis [Recovered/Resolved]
  - Mobility decreased [Not Recovered/Not Resolved]
  - Hip arthroplasty [Unknown]
  - Fall [Unknown]
  - COVID-19 [Recovering/Resolving]
  - Spinal fracture [Unknown]
  - Therapeutic product effect incomplete [Unknown]
